FAERS Safety Report 8519016 (Version 7)
Quarter: 2013Q2

REPORT INFORMATION
  Report Type: Spontaneous
  Country: None (occurrence: None)
  Receive Date: 20120411
  Receipt Date: 20130513
  Transmission Date: 20140414
  Serious: Yes (Hospitalization)
  Sender: FDA-Public Use
  Company Number: AUR-APL-2012-01764

PATIENT
  Age: 53 Year
  Sex: Female
  Weight: 82 kg

DRUGS (11)
  1. METFORMIN HYDROCHLORIDE [Suspect]
     Indication: TYPE 2 DIABETES MELLITUS
     Route: 048
     Dates: start: 20070817
  2. TOFACITINIB CITRATE [Suspect]
     Indication: RHEUMATOID ARTHRITIS
     Dosage: 20 MG (10 MG, 2 IN 1 D)
     Route: 048
     Dates: start: 20100929, end: 20120117
  3. METHOTREXATE SODIUM [Suspect]
     Indication: RHEUMATOID ARTHRITIS
     Route: 048
     Dates: start: 20110923, end: 20120220
  4. CITALOPRAM HYDROBROMIDE [Suspect]
     Indication: DEPRESSION
     Route: 048
     Dates: start: 2006
  5. PROTHIPENDYL [Suspect]
     Indication: DEPRESSION
     Route: 048
     Dates: start: 2006, end: 20120220
  6. FOLIC ACID [Concomitant]
  7. ENALAPRIL [Concomitant]
  8. METOPROLOL TARTRATE [Concomitant]
  9. EPROSARTAN [Concomitant]
  10. MESALAMINE [Concomitant]
  11. OMEPRAZOLE [Concomitant]

REACTIONS (7)
  - Haemoglobin decreased [None]
  - General physical health deterioration [None]
  - Hepatic steatosis [None]
  - Diarrhoea [None]
  - Vomiting [None]
  - Gastrointestinal haemorrhage [None]
  - Mucosal erosion [None]
